FAERS Safety Report 11214441 (Version 1)
Quarter: 2015Q2

REPORT INFORMATION
  Report Type: Spontaneous
  Country: US (occurrence: US)
  Receive Date: 20150624
  Receipt Date: 20150624
  Transmission Date: 20150821
  Serious: No
  Sender: FDA-Public Use
  Company Number: US-009507513-1506USA011522

PATIENT
  Age: 50 Year
  Sex: Male

DRUGS (1)
  1. INTRON A [Suspect]
     Active Substance: INTERFERON ALFA-2B
     Dosage: STRENGTH 10 M
     Dates: start: 20150512

REACTIONS (4)
  - Myalgia [Unknown]
  - Influenza like illness [Unknown]
  - Bone pain [Unknown]
  - Headache [Unknown]

NARRATIVE: CASE EVENT DATE: 20150512
